FAERS Safety Report 9999651 (Version 1)
Quarter: 2014Q1

REPORT INFORMATION
  Report Type: Report from Study
  Country: CA (occurrence: CA)
  Receive Date: 20140312
  Receipt Date: 20140312
  Transmission Date: 20141002
  Serious: Yes (Other)
  Sender: FDA-Public Use
  Company Number: CA-BRISTOL-MYERS SQUIBB COMPANY-20461570

PATIENT
  Age: 62 Year
  Sex: Female

DRUGS (15)
  1. ORENCIA [Suspect]
     Indication: RHEUMATOID ARTHRITIS
     Dosage: 1DF:750 UNIT NOS
     Route: 042
     Dates: start: 20131126
  2. PREDNISONE [Concomitant]
  3. ELTROXIN [Concomitant]
  4. LASIX [Concomitant]
  5. MAVIK [Concomitant]
  6. BISOPROLOL [Concomitant]
  7. SPIRONOLACTONE [Concomitant]
  8. METHOTREXATE [Concomitant]
  9. PREVACID [Concomitant]
  10. ASPIRIN [Concomitant]
  11. SPIRIVA [Concomitant]
  12. TYLENOL #3 [Concomitant]
  13. FOLIC ACID [Concomitant]
  14. ZOPICLONE [Concomitant]
  15. ALENDRONATE [Concomitant]

REACTIONS (1)
  - Arthropathy [Unknown]
